FAERS Safety Report 10352719 (Version 1)
Quarter: 2014Q3

REPORT INFORMATION
  Report Type: Spontaneous
  Country: US (occurrence: US)
  Receive Date: 20140730
  Receipt Date: 20140730
  Transmission Date: 20150326
  Serious: No
  Sender: FDA-Public Use
  Company Number: US-ABBVIE-13P-163-1137802-00

PATIENT
  Sex: Female
  Weight: 37.23 kg

DRUGS (1)
  1. SYNTHROID [Suspect]
     Active Substance: LEVOTHYROXINE SODIUM
     Indication: AUTOIMMUNE THYROIDITIS
     Dosage: 6MG/KG
     Route: 048

REACTIONS (2)
  - Hypermetabolism [Unknown]
  - Drug prescribing error [Unknown]
